FAERS Safety Report 6358750-6 (Version None)
Quarter: 2009Q3

REPORT INFORMATION
  Report Type: 
  Country: None (occurrence: None)
  Receive Date: 20090916
  Receipt Date: 20090817
  Transmission Date: 20100115
  Serious: No
  Sender: FDA-Public Use
  Company Number: US-ABBOTT-09P-163-0592579-00

PATIENT
  Age: 60 Year
  Sex: Female

DRUGS (1)
  1. TRILIPIX [Suspect]
     Indication: BLOOD CHOLESTEROL INCREASED
     Dates: start: 20090814, end: 20090815

REACTIONS (2)
  - GENERALISED ERYTHEMA [None]
  - RASH [None]
